FAERS Safety Report 14755624 (Version 2)
Quarter: 2018Q2

REPORT INFORMATION
  Report Type: Spontaneous
  Country: US (occurrence: US)
  Receive Date: 20180413
  Receipt Date: 20180601
  Transmission Date: 20180711
  Serious: No
  Sender: FDA-Public Use
  Company Number: US-ASTRAZENECA-2018SE33647

PATIENT
  Age: 26063 Day
  Sex: Male

DRUGS (4)
  1. VENTOLIN [Concomitant]
     Active Substance: ALBUTEROL SULFATE
     Indication: ASTHMA
     Dosage: AS REQUIRED
     Route: 055
  2. VITAMINS [Concomitant]
     Active Substance: VITAMINS
     Route: 048
  3. SYMBICORT [Suspect]
     Active Substance: BUDESONIDE\FORMOTEROL FUMARATE DIHYDRATE
     Indication: ASTHMA
     Dosage: 160/4.5MCG , 2 PUFFS TWO TIMES A DAY
     Route: 055
     Dates: start: 2017
  4. LEVOTHYROXINE. [Concomitant]
     Active Substance: LEVOTHYROXINE
     Indication: THYROID DISORDER
     Route: 048

REACTIONS (12)
  - Hyponatraemia [Not Recovered/Not Resolved]
  - Irritability [Recovering/Resolving]
  - Feeling abnormal [Unknown]
  - Blood pressure abnormal [Unknown]
  - Intentional device misuse [Unknown]
  - Confusional state [Recovering/Resolving]
  - Blood chloride decreased [Unknown]
  - Intentional product misuse [Not Recovered/Not Resolved]
  - Device failure [Unknown]
  - Malaise [Not Recovered/Not Resolved]
  - Diarrhoea [Unknown]
  - Insomnia [Recovering/Resolving]

NARRATIVE: CASE EVENT DATE: 20180314
